FAERS Safety Report 21375348 (Version 1)
Quarter: 2022Q3

REPORT INFORMATION
  Report Type: Spontaneous
  Country: US (occurrence: None)
  Receive Date: 20220923
  Receipt Date: 20220923
  Transmission Date: 20221027
  Serious: Yes (Other)
  Sender: FDA-Public Use
  Company Number: None

PATIENT
  Age: 54 Year
  Sex: Male
  Weight: 85 kg

DRUGS (1)
  1. CILGAVIMAB\TIXAGEVIMAB [Suspect]
     Active Substance: CILGAVIMAB\TIXAGEVIMAB
     Indication: Follicular lymphoma stage III
     Dosage: FREQUENCY : ONCE;?
     Route: 030
     Dates: start: 20220916, end: 20220916

REACTIONS (5)
  - Dyspnoea [None]
  - Seizure [None]
  - Presyncope [None]
  - Injection related reaction [None]
  - Sedation [None]

NARRATIVE: CASE EVENT DATE: 20220916
